FAERS Safety Report 4401259-7 (Version None)
Quarter: 2004Q3

REPORT INFORMATION
  Report Type: 
  Country: None (occurrence: None)
  Receive Date: 20040907
  Receipt Date: 20040123
  Transmission Date: 20050211
  Serious: No
  Sender: FDA-Public Use
  Company Number: US-BRISTOL-MYERS SQUIBB COMPANY-12486239

PATIENT
  Age: 65 Year
  Sex: Female
  Weight: 50 kg

DRUGS (9)
  1. COUMADIN [Suspect]
     Indication: AORTIC VALVE REPLACEMENT
     Route: 048
     Dates: start: 19981101
  2. COUMADIN [Suspect]
     Indication: MITRAL VALVE REPLACEMENT
     Route: 048
     Dates: start: 19981101
  3. THYROID TAB [Concomitant]
     Dosage: 90 MG, 1 TAB FOUR TIMES WEEKLY, 120 MG 1 TAB THREE TIMES WEEKLY
  4. DIGOXIN [Concomitant]
  5. CALCITRIOL [Concomitant]
  6. CALCIUM [Concomitant]
  7. ESTRACE [Concomitant]
     Dosage: 1 MG THE FIRST 25 DAYS OF THE MONTH
  8. VASOTEC [Concomitant]
  9. FOSAMAX [Concomitant]

REACTIONS (1)
  - INTERNATIONAL NORMALISED RATIO ABNORMAL [None]
